FAERS Safety Report 25997618 (Version 2)
Quarter: 2025Q4

REPORT INFORMATION
  Report Type: Report from Study
  Country: US (occurrence: US)
  Receive Date: 20251104
  Receipt Date: 20251214
  Transmission Date: 20260119
  Serious: Yes (Death, Other)
  Sender: ABBVIE
  Company Number: US-ABBVIE-6533048

PATIENT
  Age: 62 Year
  Sex: Female
  Weight: 66.224 kg

DRUGS (4)
  1. SYNTHROID [Suspect]
     Active Substance: LEVOTHYROXINE SODIUM
     Indication: Thyroid cancer
     Dosage: 1 TABLET MONDAY TO SATURDAY AND HALF TABLET SUNDAY.
     Route: 048
     Dates: start: 20220202, end: 20250806
  2. CABOZANTINIB S-MALATE [Suspect]
     Active Substance: CABOZANTINIB S-MALATE
     Indication: Thyroid cancer
     Route: 065
     Dates: start: 2022, end: 202508
  3. EXFORGE [Concomitant]
     Active Substance: AMLODIPINE BESYLATE\VALSARTAN
     Indication: Hypertension
  4. GABAPENTIN [Concomitant]
     Active Substance: GABAPENTIN
     Indication: Nerve injury

REACTIONS (4)
  - Respiratory failure [Fatal]
  - Decreased appetite [Unknown]
  - Weight increased [Unknown]
  - Thyroid cancer [Fatal]

NARRATIVE: CASE EVENT DATE: 20250501
